FAERS Safety Report 13171386 (Version 1)
Quarter: 2017Q1

REPORT INFORMATION
  Report Type: Spontaneous
  Country: US (occurrence: US)
  Receive Date: 20170201
  Receipt Date: 20170201
  Transmission Date: 20170428
  Serious: Yes (Other)
  Sender: FDA-Public Use
  Company Number: US-ASTRAZENECA-2017SE09434

PATIENT
  Age: 896 Month
  Sex: Female
  Weight: 113.9 kg

DRUGS (13)
  1. NITROFURANTOIN. [Concomitant]
     Active Substance: NITROFURANTOIN
     Route: 048
  2. ALPRAZOLAM. [Concomitant]
     Active Substance: ALPRAZOLAM
  3. AMLODIPINE [Concomitant]
     Active Substance: AMLODIPINE BESYLATE
     Route: 048
  4. ESCITALOPRAM [Concomitant]
     Active Substance: ESCITALOPRAM OXALATE
     Route: 048
  5. LIDOCAINE. [Concomitant]
     Active Substance: LIDOCAINE
     Route: 061
  6. IBRANCE [Suspect]
     Active Substance: PALBOCICLIB
     Indication: BREAST CANCER FEMALE
     Route: 048
     Dates: start: 201610
  7. ACETAMINOPHEN. [Concomitant]
     Active Substance: ACETAMINOPHEN
  8. CLOBETASOL [Concomitant]
     Active Substance: CLOBETASOL
     Route: 061
  9. FASLODEX [Suspect]
     Active Substance: FULVESTRANT
     Indication: BREAST CANCER FEMALE
     Route: 030
     Dates: start: 201610
  10. IBRANCE [Suspect]
     Active Substance: PALBOCICLIB
     Indication: BREAST CANCER FEMALE
     Route: 048
     Dates: start: 201611
  11. ANASTROZOLE. [Suspect]
     Active Substance: ANASTROZOLE
     Indication: BREAST CANCER FEMALE
     Route: 048
  12. SYNTHROID [Concomitant]
     Active Substance: LEVOTHYROXINE SODIUM
     Route: 048
  13. VALSARTAN/HYDROCHLOROTHIAZIDE [Concomitant]
     Active Substance: HYDROCHLOROTHIAZIDE\VALSARTAN
     Dosage: 80/12.5 MG, UNKNOWN
     Route: 048

REACTIONS (20)
  - Muscular weakness [Recovering/Resolving]
  - Fall [Unknown]
  - Malignant neoplasm progression [Unknown]
  - Gait disturbance [Not Recovered/Not Resolved]
  - Vitamin D deficiency [Unknown]
  - Nasopharyngitis [Unknown]
  - Vertigo [Not Recovered/Not Resolved]
  - Hepatic neoplasm [Unknown]
  - Diarrhoea [Unknown]
  - Metastases to bone [Unknown]
  - Dizziness [Not Recovered/Not Resolved]
  - Neutropenia [Unknown]
  - Depression [Unknown]
  - Oestrogen receptor positive breast cancer [None]
  - Neoplasm recurrence [None]
  - Spinal cord compression [Unknown]
  - Pathological fracture [Not Recovered/Not Resolved]
  - Upper limb fracture [Unknown]
  - Pulmonary mass [Unknown]
  - Rash [Recovered/Resolved]

NARRATIVE: CASE EVENT DATE: 201308
